FAERS Safety Report 8251244-2 (Version None)
Quarter: 2012Q2

REPORT INFORMATION
  Report Type: 
  Country: None (occurrence: None)
  Receive Date: 20120402
  Receipt Date: 20120328
  Transmission Date: 20120825
  Serious: No
  Sender: FDA-Public Use
  Company Number: US-PFIZER INC-2012052570

PATIENT
  Age: 72 Year
  Sex: Female

DRUGS (1)
  1. PREMPRO [Suspect]
     Dosage: UNK
     Dates: start: 19900101

REACTIONS (2)
  - BACK PAIN [None]
  - SPINAL DISORDER [None]
